FAERS Safety Report 5407999-5 (Version None)
Quarter: 2007Q3

REPORT INFORMATION
  Report Type: 
  Country: None (occurrence: None)
  Receive Date: 20070803
  Receipt Date: 20070725
  Transmission Date: 20080115
  Serious: Yes (Life-Threatening, Hospitalization)
  Sender: FDA-Public Use
  Company Number: 310001L07ESP

PATIENT
  Age: 35 Year
  Sex: Female

DRUGS (2)
  1. FOLLITROPIN ALPHA (FOLLITROPIN ALFA) [Suspect]
     Indication: ASSISTED FERTILISATION
     Dosage: 1875 IU
  2. MENOTROPHIN (METNOTROPHIN) [Suspect]
     Indication: ASSISTED FERTILISATION
     Dosage: 1275 IU

REACTIONS (17)
  - ACUTE MYOCARDIAL INFARCTION [None]
  - ANTIPHOSPHOLIPID SYNDROME [None]
  - AORTIC ANEURYSM [None]
  - AORTIC VALVE CALCIFICATION [None]
  - AORTIC VALVE DISEASE [None]
  - AORTIC VALVE INCOMPETENCE [None]
  - AORTIC VALVE STENOSIS [None]
  - APHASIA [None]
  - CEREBRAL ISCHAEMIA [None]
  - CEREBRAL THROMBOSIS [None]
  - DILATATION VENTRICULAR [None]
  - ENDOCARDITIS NONINFECTIVE [None]
  - HEMIPARESIS [None]
  - INTRACARDIAC THROMBUS [None]
  - OVARIAN HYPERSTIMULATION SYNDROME [None]
  - PERICARDIAL EFFUSION [None]
  - POST PROCEDURAL COMPLICATION [None]
